FAERS Safety Report 8068302-8 (Version None)
Quarter: 2012Q1

REPORT INFORMATION
  Report Type: 
  Country: None (occurrence: None)
  Receive Date: 20120124
  Receipt Date: 20111005
  Transmission Date: 20120608
  Serious: No
  Sender: FDA-Public Use
  Company Number: US-AMGEN-USASP2011051445

PATIENT
  Age: 87 Year
  Sex: Female

DRUGS (11)
  1. MULTI-VITAMINS [Concomitant]
     Dosage: UNK
  2. PAXIL CR [Concomitant]
  3. KAPIDEX [Concomitant]
  4. VITAMIN B COMPLEX CAP [Concomitant]
     Dosage: UNK
  5. ASPIRIN [Concomitant]
  6. PRESERVISION EYE VITAMIN AND MINERAL SUPPL. [Concomitant]
     Indication: MACULAR DEGENERATION
     Dosage: UNK
  7. PREMARIN [Concomitant]
     Dosage: UNK
  8. CALCIUM PLUS VITAMIN D [Concomitant]
     Dosage: UNK
  9. PROLIA [Suspect]
     Indication: OSTEOPOROSIS POSTMENOPAUSAL
     Dosage: 60 MG, Q6MO
     Dates: start: 20101101
  10. SYNTHROID [Concomitant]
  11. TRIAMTERENE AND HYDROCHLOROTHIAZIDE [Concomitant]
     Dosage: UNK

REACTIONS (5)
  - PRURITUS GENERALISED [None]
  - PAIN [None]
  - SENSORY LOSS [None]
  - PARAESTHESIA [None]
  - BURNING SENSATION [None]
